FAERS Safety Report 4647248-9 (Version None)
Quarter: 2005Q2

REPORT INFORMATION
  Report Type: 
  Country: None (occurrence: None)
  Receive Date: 20050426
  Receipt Date: 20050413
  Transmission Date: 20051028
  Serious: Yes (Hospitalization, Other)
  Sender: FDA-Public Use
  Company Number: 2005056736

PATIENT
  Age: 65 Year
  Sex: Female
  Weight: 66.6788 kg

DRUGS (9)
  1. CELEBREX [Suspect]
     Indication: RHEUMATOID ARTHRITIS
     Dosage: 100 MG, ORAL
     Route: 048
  2. BEXTRA [Suspect]
     Indication: RHEUMATOID ARTHRITIS
     Dosage: ORAL
     Route: 048
  3. NITROGLYCERIN [Suspect]
     Indication: ILL-DEFINED DISORDER
  4. ROFECOXIB [Concomitant]
  5. LABETALOL HCL [Concomitant]
  6. FLUOXETINE HCL [Concomitant]
  7. METFORMIN HCL [Concomitant]
  8. FENOFIBRATE [Concomitant]
  9. LOPERAMIDE (LOERAMIDE) [Concomitant]

REACTIONS (25)
  - APHAGIA [None]
  - BACK INJURY [None]
  - BLISTER [None]
  - BODY TEMPERATURE INCREASED [None]
  - CHEST DISCOMFORT [None]
  - CHEST PAIN [None]
  - DIARRHOEA [None]
  - DRUG INEFFECTIVE [None]
  - DYSPNOEA [None]
  - FATIGUE [None]
  - HEADACHE [None]
  - HIATUS HERNIA [None]
  - HYPERTENSION [None]
  - HYPOTRICHOSIS [None]
  - MADAROSIS [None]
  - NAUSEA [None]
  - PALPITATIONS [None]
  - RENAL DISORDER [None]
  - RENAL PAIN [None]
  - ROAD TRAFFIC ACCIDENT [None]
  - SCAB [None]
  - SCAR [None]
  - SKIN WRINKLING [None]
  - UPPER RESPIRATORY TRACT INFECTION [None]
  - WEIGHT DECREASED [None]
